FAERS Safety Report 10915124 (Version 2)
Quarter: 2015Q4

REPORT INFORMATION
  Report Type: Spontaneous
  Country: US (occurrence: US)
  Receive Date: 20150315
  Receipt Date: 20151006
  Transmission Date: 20160304
  Serious: Yes (Death, Hospitalization, Other)
  Sender: FDA-Public Use
  Company Number: US-AMGEN-USASP2015023331

PATIENT
  Age: 59 Year
  Sex: Female

DRUGS (8)
  1. BEVACIZUMAB [Suspect]
     Active Substance: BEVACIZUMAB
     Dosage: 952 MG, UNK
     Route: 042
     Dates: start: 20150308
  2. NEULASTA [Suspect]
     Active Substance: PEGFILGRASTIM
     Indication: PROPHYLAXIS
     Dosage: INITIATED WITH CYCLE 2 CHEMOTHERAPY
     Route: 065
  3. BEVACIZUMAB [Suspect]
     Active Substance: BEVACIZUMAB
     Dosage: 952 MG, UNK
     Route: 042
     Dates: start: 20150224
  4. DOCETAXEL. [Suspect]
     Active Substance: DOCETAXEL
     Dosage: 70 MG, UNK
     Route: 042
     Dates: start: 20150224
  5. CARBOPLATIN. [Suspect]
     Active Substance: CARBOPLATIN
     Dosage: 272.5 MG, UNK
     Route: 042
     Dates: start: 20150224
  6. DOCETAXEL. [Suspect]
     Active Substance: DOCETAXEL
     Indication: SQUAMOUS CELL CARCINOMA OF HEAD AND NECK
     Dosage: OVER 1 HOUR; DAY 1, MOST RECENT DOSE WAS ADMINISTERED ON 03/FEB/2015 (75 MG/M2, 1 IN 21 D)
     Route: 042
     Dates: start: 20150106
  7. CARBOPLATIN. [Suspect]
     Active Substance: CARBOPLATIN
     Indication: SQUAMOUS CELL CARCINOMA OF HEAD AND NECK
     Dosage: DOSE 6 AUC OVER 30 MINUTES, DAY 1, MOST RECENT DOSE WAS ADMINISTERED ON 03/FEB2015, 486.5 MG
     Route: 042
     Dates: start: 20150106
  8. BEVACIZUMAB [Suspect]
     Active Substance: BEVACIZUMAB
     Indication: SQUAMOUS CELL CARCINOMA OF HEAD AND NECK
     Dosage: OVER 30 TO 90 MINUTES; DAY 1, MOST RECENT DOSE WAS ADMINISTERED ON 03/FEB/2015 (15 MG/KG, 1 IN 21 D)
     Route: 042
     Dates: start: 20150106

REACTIONS (2)
  - Pyrexia [Recovered/Resolved]
  - Death [Fatal]

NARRATIVE: CASE EVENT DATE: 20150209
